FAERS Safety Report 7962740-7 (Version None)
Quarter: 2011Q4

REPORT INFORMATION
  Report Type: 
  Country: None (occurrence: None)
  Receive Date: 20111207
  Receipt Date: 20111130
  Transmission Date: 20120403
  Serious: Yes (Other)
  Sender: FDA-Public Use
  Company Number: AU-PFIZER INC-2011288895

PATIENT
  Age: 54 Year
  Sex: Male

DRUGS (2)
  1. CABERGOLINE [Suspect]
     Indication: PARKINSON'S DISEASE
     Dosage: UNK
     Dates: start: 20060801, end: 20080701
  2. PRAMIPEXOLE DIHYDROCHLORIDE [Suspect]
     Indication: PARKINSON'S DISEASE
     Dosage: UNK
     Dates: start: 20080701, end: 20091101

REACTIONS (11)
  - SUICIDE ATTEMPT [None]
  - HYPERSEXUALITY [None]
  - COMPULSIVE SHOPPING [None]
  - COMPULSIVE HOARDING [None]
  - SOCIAL AVOIDANT BEHAVIOUR [None]
  - ANXIETY [None]
  - LEGAL PROBLEM [None]
  - SUICIDAL IDEATION [None]
  - DEPRESSION [None]
  - COMPULSIVE SEXUAL BEHAVIOUR [None]
  - STEREOTYPY [None]
